FAERS Safety Report 10625451 (Version 1)
Quarter: 2014Q4

REPORT INFORMATION
  Report Type: Spontaneous
  Country: US (occurrence: US)
  Receive Date: 20141204
  Receipt Date: 20141204
  Transmission Date: 20150529
  Serious: Yes (Hospitalization, Other)
  Sender: FDA-Public Use
  Company Number: US-JNJFOC-20141115857

PATIENT
  Age: 76 Year
  Sex: Female
  Weight: 78.02 kg

DRUGS (1)
  1. XARELTO [Suspect]
     Active Substance: RIVAROXABAN
     Indication: DEEP VEIN THROMBOSIS
     Route: 048
     Dates: start: 201408, end: 20140909

REACTIONS (11)
  - Wound [Recovered/Resolved]
  - Skeletal injury [Unknown]
  - Balance disorder [Recovered/Resolved]
  - Staphylococcal infection [Unknown]
  - Contusion [Unknown]
  - Cellulitis [Unknown]
  - Fall [Not Recovered/Not Resolved]
  - Haemorrhage [Unknown]
  - Central venous catheterisation [Unknown]
  - Scar [Unknown]
  - Face injury [Unknown]

NARRATIVE: CASE EVENT DATE: 201408
